FAERS Safety Report 7521521-9 (Version None)
Quarter: 2011Q2

REPORT INFORMATION
  Report Type: 
  Country: None (occurrence: None)
  Receive Date: 20110603
  Receipt Date: 20110524
  Transmission Date: 20111010
  Serious: No
  Sender: FDA-Public Use
  Company Number: US-BAYER-2011-003640

PATIENT
  Sex: Female

DRUGS (1)
  1. MIRENA [Suspect]
     Indication: PRODUCT USED FOR UNKNOWN INDICATION
     Dates: start: 20100101

REACTIONS (7)
  - BREAST PAIN [None]
  - MUSCLE SPASMS [None]
  - ARTHRALGIA [None]
  - FATIGUE [None]
  - PREGNANCY WITH CONTRACEPTIVE DEVICE [None]
  - VAGINAL DISCHARGE [None]
  - POLLAKIURIA [None]
